FAERS Safety Report 12570375 (Version 3)
Quarter: 2018Q1

REPORT INFORMATION
  Report Type: Spontaneous
  Country: US (occurrence: US)
  Receive Date: 20160719
  Receipt Date: 20180327
  Transmission Date: 20180508
  Serious: No
  Sender: FDA-Public Use
  Company Number: US-PFIZER INC-2016342296

PATIENT
  Age: 56 Year
  Sex: Male

DRUGS (3)
  1. BOSULIF [Suspect]
     Active Substance: BOSUTINIB MONOHYDRATE
     Indication: CHRONIC MYELOID LEUKAEMIA (IN REMISSION)
     Dosage: 500 MG, DAILY (100 MG, 5 TABLETS AT BEDTIME)
     Route: 048
     Dates: start: 201606
  2. BOSULIF [Suspect]
     Active Substance: BOSUTINIB MONOHYDRATE
     Dosage: 500 MG, DAILY (100 MG, 5 TABLETS AT BEDTIME)
     Route: 048
     Dates: start: 201607
  3. BOSULIF [Suspect]
     Active Substance: BOSUTINIB MONOHYDRATE
     Dosage: 300 MG, DAILY (100 MG, 3 TABLETS AS DIRECTED)
     Route: 048
     Dates: start: 201607

REACTIONS (8)
  - Abdominal pain upper [Unknown]
  - Nausea [Unknown]
  - Myalgia [Unknown]
  - Diarrhoea [Unknown]
  - Rash [Unknown]
  - Headache [Unknown]
  - Constipation [Unknown]
  - Bone pain [Unknown]
